FAERS Safety Report 9925339 (Version 2)
Quarter: 2014Q2

REPORT INFORMATION
  Report Type: Spontaneous
  Country: AU (occurrence: AU)
  Receive Date: 20140226
  Receipt Date: 20140515
  Transmission Date: 20141212
  Serious: Yes (Hospitalization)
  Sender: FDA-Public Use
  Company Number: AU-MERCK-1402AUS011086

PATIENT
  Sex: Male

DRUGS (2)
  1. EZETROL [Suspect]
     Route: 048
  2. ATORVASTATIN [Concomitant]

REACTIONS (4)
  - Angina pectoris [Unknown]
  - Stent placement [Unknown]
  - Musculoskeletal stiffness [Unknown]
  - Pain [Unknown]
